FAERS Safety Report 18199954 (Version 1)
Quarter: 2020Q3

REPORT INFORMATION
  Report Type: Spontaneous
  Country: US (occurrence: US)
  Receive Date: 20200826
  Receipt Date: 20200826
  Transmission Date: 20201103
  Serious: Yes (Hospitalization, Disabling, Other)
  Sender: FDA-Public Use
  Company Number: US-PURDUE-USA-2020-0162851

PATIENT
  Sex: Male

DRUGS (3)
  1. OXYCONTIN [Suspect]
     Active Substance: OXYCODONE HYDROCHLORIDE
     Indication: PRODUCT USED FOR UNKNOWN INDICATION
     Route: 048
  2. OXYCODONE HYDROCHLORIDE. [Suspect]
     Active Substance: OXYCODONE HYDROCHLORIDE
     Indication: PRODUCT USED FOR UNKNOWN INDICATION
     Route: 048
  3. OXYCODONE HYDROCHLORIDE (SIMILAR TO NDA 22?272) [Suspect]
     Active Substance: OXYCODONE HYDROCHLORIDE
     Indication: PRODUCT USED FOR UNKNOWN INDICATION
     Route: 048

REACTIONS (15)
  - Disability [Unknown]
  - Drug withdrawal syndrome [Unknown]
  - Neuropathy peripheral [Unknown]
  - Social anxiety disorder [Unknown]
  - Endocarditis [Unknown]
  - Aneurysm [Unknown]
  - Drug abuse [Unknown]
  - Hemiplegia [Unknown]
  - Drug dependence [Unknown]
  - Incorrect route of product administration [Unknown]
  - Cardiac disorder [Unknown]
  - Memory impairment [Unknown]
  - Suicidal ideation [Unknown]
  - Hospitalisation [Unknown]
  - Migraine [Unknown]
